FAERS Safety Report 7153322-8 (Version None)
Quarter: 2010Q4

REPORT INFORMATION
  Report Type: 
  Country: None (occurrence: None)
  Receive Date: 20101209
  Receipt Date: 20101209
  Transmission Date: 20110411
  Serious: No
  Sender: FDA-Public Use
  Company Number: None

PATIENT
  Age: 61 Year
  Sex: Male

DRUGS (8)
  1. REVLIMID [Suspect]
     Indication: MULTIPLE MYELOMA
     Dosage: REVLIMID 15MG QOD X21D ORALLY
     Route: 048
  2. DEXAMETHASONE [Concomitant]
  3. ARIXTRA [Concomitant]
  4. XELODA [Concomitant]
  5. LOSARTAN POTASSIUM [Concomitant]
  6. SIMVASTATIN [Concomitant]
  7. CARVEDILOL [Concomitant]
  8. RANITIDINE [Concomitant]

REACTIONS (6)
  - ANXIETY [None]
  - COMPRESSION FRACTURE [None]
  - DIARRHOEA [None]
  - DIASTOLIC DYSFUNCTION [None]
  - PNEUMONITIS [None]
  - VENOUS THROMBOSIS [None]
